FAERS Safety Report 8390925-7 (Version None)
Quarter: 2012Q2

REPORT INFORMATION
  Report Type: 
  Country: None (occurrence: None)
  Receive Date: 20120529
  Receipt Date: 20120514
  Transmission Date: 20120825
  Serious: Yes (Hospitalization, Other)
  Sender: FDA-Public Use
  Company Number: US-JNJFOC-20120512668

PATIENT
  Sex: Male
  Weight: 81.65 kg

DRUGS (6)
  1. INVEGA SUSTENNA [Suspect]
     Indication: SCHIZOPHRENIA, PARANOID TYPE
     Route: 042
     Dates: start: 20120201
  2. RISPERDAL [Suspect]
     Indication: SCHIZOPHRENIA, PARANOID TYPE
     Route: 048
     Dates: start: 20120201, end: 20120301
  3. RISPERDAL [Suspect]
     Indication: SCHIZOPHRENIA, PARANOID TYPE
     Route: 048
     Dates: start: 20120101, end: 20120101
  4. RISPERDAL [Suspect]
     Route: 048
     Dates: start: 20120101, end: 20120201
  5. RISPERDAL [Suspect]
     Route: 048
     Dates: start: 20120101, end: 20120101
  6. RISPERDAL [Suspect]
     Route: 048
     Dates: start: 20120101, end: 20120101

REACTIONS (7)
  - HALLUCINATION [None]
  - NERVOUSNESS [None]
  - DRUG INEFFECTIVE [None]
  - ANXIETY [None]
  - INCORRECT ROUTE OF DRUG ADMINISTRATION [None]
  - WEIGHT INCREASED [None]
  - MENTAL IMPAIRMENT [None]
